FAERS Safety Report 7795572-3 (Version None)
Quarter: 2011Q4

REPORT INFORMATION
  Report Type: 
  Country: None (occurrence: None)
  Receive Date: 20111004
  Receipt Date: 20110928
  Transmission Date: 20120403
  Serious: Yes (Hospitalization)
  Sender: FDA-Public Use
  Company Number: US-GLAXOSMITHKLINE-A0854014A

PATIENT
  Age: 56 Year
  Sex: Male
  Weight: 84.1 kg

DRUGS (1)
  1. AVANDIA [Suspect]
     Indication: TYPE 2 DIABETES MELLITUS
     Dosage: 2MG TWICE PER DAY
     Route: 048
     Dates: start: 20060101, end: 20080101

REACTIONS (3)
  - PULSE ABSENT [None]
  - CARDIAC DISORDER [None]
  - CARDIAC FAILURE [None]
